FAERS Safety Report 14205005 (Version 1)
Quarter: 2017Q4

REPORT INFORMATION
  Report Type: Spontaneous
  Country: US (occurrence: US)
  Receive Date: 20171120
  Receipt Date: 20171120
  Transmission Date: 20180321
  Serious: No
  Sender: FDA-Public Use
  Company Number: US-GLAXOSMITHKLINE-US2017173333

PATIENT
  Age: 76 Year
  Sex: Male

DRUGS (1)
  1. NICODERM CQ [Suspect]
     Active Substance: NICOTINE
     Indication: SMOKING CESSATION THERAPY
     Dosage: 21 MG, UNK
     Dates: start: 20171106, end: 20171107

REACTIONS (6)
  - Confusional state [Recovering/Resolving]
  - Aggression [Recovering/Resolving]
  - Adverse reaction [Recovering/Resolving]
  - Nightmare [Recovering/Resolving]
  - Anger [Recovering/Resolving]
  - Amnesia [Recovering/Resolving]

NARRATIVE: CASE EVENT DATE: 20171106
